FAERS Safety Report 5358621-8 (Version None)
Quarter: 2007Q2

REPORT INFORMATION
  Report Type: 
  Country: None (occurrence: None)
  Receive Date: 20070614
  Receipt Date: 20070614
  Transmission Date: 20071010
  Serious: No
  Sender: FDA-Public Use
  Company Number: None

PATIENT
  Sex: Male
  Weight: 97.5234 kg

DRUGS (2)
  1. CYMBALTA [Suspect]
     Indication: AGORAPHOBIA
     Dosage: 30 MG 2 TIMES PER DAY PO
     Route: 048
     Dates: start: 20060325, end: 20070613
  2. CYMBALTA [Suspect]
     Indication: PANIC ATTACK
     Dosage: 30 MG 2 TIMES PER DAY PO
     Route: 048
     Dates: start: 20060325, end: 20070613

REACTIONS (15)
  - APATHY [None]
  - ARTHRALGIA [None]
  - ASTHENIA [None]
  - DIZZINESS [None]
  - DRUG WITHDRAWAL SYNDROME [None]
  - DYSGEUSIA [None]
  - HOT FLUSH [None]
  - HYPERHIDROSIS [None]
  - INFLUENZA LIKE ILLNESS [None]
  - INSOMNIA [None]
  - LOSS OF LIBIDO [None]
  - MOOD SWINGS [None]
  - MYALGIA [None]
  - NERVOUS SYSTEM DISORDER [None]
  - PARANOIA [None]
